FAERS Safety Report 19154903 (Version 3)
Quarter: 2021Q2

REPORT INFORMATION
  Report Type: Spontaneous
  Country: US (occurrence: US)
  Receive Date: 20210420
  Receipt Date: 20210510
  Transmission Date: 20210717
  Serious: No
  Sender: FDA-Public Use
  Company Number: US-BEH-2021130705

PATIENT
  Age: 79 Year
  Sex: Female

DRUGS (3)
  1. HIZENTRA [Suspect]
     Active Substance: HUMAN IMMUNOGLOBULIN G
     Indication: IMMUNODEFICIENCY COMMON VARIABLE
     Dosage: 10 GRAM, QW
     Route: 058
     Dates: start: 201907
  2. HIZENTRA [Suspect]
     Active Substance: HUMAN IMMUNOGLOBULIN G
     Dosage: 10 GRAM, QW
     Route: 058
     Dates: start: 20210410
  3. HIZENTRA [Suspect]
     Active Substance: HUMAN IMMUNOGLOBULIN G
     Dosage: 10 GRAM, QW
     Route: 058
     Dates: start: 201910

REACTIONS (10)
  - Infusion site pain [Unknown]
  - Paraesthesia oral [Recovered/Resolved]
  - Adverse drug reaction [Unknown]
  - Anger [Unknown]
  - Rash [Recovered/Resolved]
  - Recalled product administered [Recovered/Resolved]
  - Lymphoedema [Unknown]
  - Recalled product administered [Unknown]
  - Pain [Unknown]
  - Product label confusion [Unknown]

NARRATIVE: CASE EVENT DATE: 20210410
